FAERS Safety Report 10015724 (Version 2)
Quarter: 2014Q4

REPORT INFORMATION
  Report Type: Spontaneous
  Country: US (occurrence: US)
  Receive Date: 20140317
  Receipt Date: 20141107
  Transmission Date: 20150528
  Serious: Yes (Hospitalization)
  Sender: FDA-Public Use
  Company Number: US-BAYER-2014-039342

PATIENT
  Age: 17 Year
  Sex: Female
  Weight: 71.2 kg

DRUGS (1)
  1. MIRENA [Suspect]
     Active Substance: LEVONORGESTREL
     Dosage: 20 MCG/24HR, CONT
     Route: 015
     Dates: start: 201102, end: 201105

REACTIONS (5)
  - Pain [None]
  - Emotional distress [None]
  - Device issue [None]
  - Injury [None]
  - Uterine perforation [None]

NARRATIVE: CASE EVENT DATE: 2011
